FAERS Safety Report 6245040-5 (Version None)
Quarter: 2009Q2

REPORT INFORMATION
  Report Type: 
  Country: None (occurrence: None)
  Receive Date: 20090619
  Receipt Date: 20090331
  Transmission Date: 20091009
  Serious: No
  Sender: FDA-Public Use
  Company Number: ALL1-2009-00519

PATIENT
  Age: 23 Year
  Sex: Female
  Weight: 71.2 kg

DRUGS (4)
  1. VYVANSE [Suspect]
     Indication: ATTENTION DEFICIT/HYPERACTIVITY DISORDER
     Dosage: 70 MG, 1X/DAY:QD, ORAL
     Route: 048
     Dates: start: 20080210
  2. LASIX [Concomitant]
  3. POTASSIUM (POTASSIUM) [Concomitant]
  4. LISINOPRIL [Concomitant]

REACTIONS (4)
  - ANXIETY [None]
  - COUGH [None]
  - DRUG INEFFECTIVE [None]
  - INSOMNIA [None]
